FAERS Safety Report 7434092-2 (Version None)
Quarter: 2011Q2

REPORT INFORMATION
  Report Type: 
  Country: None (occurrence: None)
  Receive Date: 20110425
  Receipt Date: 20100623
  Transmission Date: 20111010
  Serious: Yes (Other)
  Sender: FDA-Public Use
  Company Number: US-MYLANLABS-2010S1011370

PATIENT
  Sex: Male

DRUGS (6)
  1. LORAZEPAM [Suspect]
     Route: 048
  2. LORAZEPAM [Suspect]
     Indication: PHOBIA
     Route: 048
     Dates: start: 19850101
  3. LORAZEPAM [Suspect]
     Route: 048
  4. LORAZEPAM [Suspect]
     Route: 048
  5. LORAZEPAM [Suspect]
     Indication: ANXIETY
     Route: 048
     Dates: start: 19850101
  6. LORAZEPAM [Suspect]
     Route: 048

REACTIONS (2)
  - DRUG WITHDRAWAL SYNDROME [None]
  - DRUG DEPENDENCE [None]
